FAERS Safety Report 19609515 (Version 2)
Quarter: 2021Q4

REPORT INFORMATION
  Report Type: Spontaneous
  Country: AU (occurrence: AU)
  Receive Date: 20210726
  Receipt Date: 20211208
  Transmission Date: 20220303
  Serious: Yes (Hospitalization, Other)
  Sender: FDA-Public Use
  Company Number: AU-ACCORD-230086

PATIENT
  Age: 22 Year
  Sex: Male

DRUGS (6)
  1. MONTELUKAST [Suspect]
     Active Substance: MONTELUKAST SODIUM
     Indication: Chronic graft versus host disease
     Dosage: REGIMEN: 1
  2. FLUTICASONE [Concomitant]
     Active Substance: FLUTICASONE
     Indication: Chronic graft versus host disease
     Dosage: STRENGTH:125 MICROGRAM
     Dates: start: 202106
  3. AZITHROMYCIN [Concomitant]
     Active Substance: AZITHROMYCIN
     Indication: Chronic graft versus host disease
     Dates: start: 202106
  4. PREDNISOLONE [Concomitant]
     Active Substance: PREDNISOLONE
     Dosage: STRENGTH:1 MG
     Dates: start: 202106
  5. CYCLOSPORINE [Concomitant]
     Active Substance: CYCLOSPORINE
     Dates: start: 202106
  6. ITRACONAZOLE [Concomitant]
     Active Substance: ITRACONAZOLE
     Dosage: STRENGTH: 100 MG
     Dates: start: 20210524

REACTIONS (3)
  - Obliterative bronchiolitis [Unknown]
  - Drug ineffective [Unknown]
  - Off label use [Unknown]

NARRATIVE: CASE EVENT DATE: 20210401
